FAERS Safety Report 4944208-5 (Version None)
Quarter: 2006Q1

REPORT INFORMATION
  Report Type: 
  Country: None (occurrence: None)
  Receive Date: 20060315
  Receipt Date: 20060308
  Transmission Date: 20060701
  Serious: Yes (Life-Threatening)
  Sender: FDA-Public Use
  Company Number: US-KINGPHARMUSA00001-K200600318

PATIENT
  Age: 58 Year
  Sex: Male

DRUGS (6)
  1. ALTACE [Suspect]
     Indication: HYPERTENSION
     Dosage: 20 MG, QD
     Route: 048
     Dates: start: 20060125, end: 20060212
  2. AMARYL [Concomitant]
     Indication: DIABETES MELLITUS
     Dosage: 9 MG, UNK
     Route: 048
     Dates: start: 20060125, end: 20060212
  3. NOVOMIX [Concomitant]
     Indication: DIABETES MELLITUS
     Dosage: 60 U, UNK
     Route: 058
  4. GLUCOPHAGE [Concomitant]
     Indication: DIABETES MELLITUS
     Dosage: 1,000 MG, UNK
     Route: 048
     Dates: end: 20060212
  5. ASPIRIN [Concomitant]
     Indication: CORONARY ARTERY DISEASE
     Dosage: 100 MG, UNK
     Route: 048
  6. HYZAAR [Concomitant]
     Indication: HYPERTENSION
     Dosage: 50/12.5MG, QD
     Route: 048
     Dates: start: 20060125, end: 20060212

REACTIONS (9)
  - ANEURYSM [None]
  - CEREBRAL ISCHAEMIA [None]
  - CEREBROVASCULAR ACCIDENT [None]
  - DYSARTHRIA [None]
  - HIGH DENSITY LIPOPROTEIN DECREASED [None]
  - HYPOAESTHESIA [None]
  - INTENTIONAL DRUG MISUSE [None]
  - PARAESTHESIA ORAL [None]
  - TREATMENT NONCOMPLIANCE [None]
